FAERS Safety Report 9771202 (Version 4)
Quarter: 2014Q1

REPORT INFORMATION
  Report Type: Spontaneous
  Country: US (occurrence: US)
  Receive Date: 20131218
  Receipt Date: 20140115
  Transmission Date: 20141002
  Serious: Yes (Death, Hospitalization, Other)
  Sender: FDA-Public Use
  Company Number: US-PFIZER INC-2013355853

PATIENT
  Age: 74 Year
  Sex: Male
  Weight: 65.31 kg

DRUGS (25)
  1. SUTENT [Suspect]
     Indication: METASTATIC RENAL CELL CARCINOMA
     Dosage: 50 MG, DAILY
     Route: 048
     Dates: start: 20131124, end: 20131215
  2. XANAX [Concomitant]
     Dosage: 0.5 MG, AS NEEDED NIGHTLY
     Route: 048
  3. METFORMIN [Concomitant]
     Dosage: UNK
  4. NIFEDIPINE [Concomitant]
     Dosage: UNK
  5. GLYBURIDE [Concomitant]
     Dosage: UNK
  6. ZOFRAN [Concomitant]
     Indication: NAUSEA
     Dosage: 8 MG, TAKE 1 TABLET  EVERY 6 (SIX) HOURS AS NEEDED
     Route: 048
  7. NORCO [Concomitant]
     Dosage: 5 (HYDROCODONE)-325 (ACETAMLNOPHEN)1 TABLET EVERY 6 (SIX) HOURS AS NEEDED
     Route: 048
  8. VOLTAREN [Concomitant]
     Dosage: 1 % GEL
  9. TRAMADOL [Concomitant]
     Dosage: UNK
  10. REMERON [Concomitant]
     Dosage: 15 MG, ONE TABLET NIGHTLY
     Route: 048
  11. ROLAIDS [Concomitant]
     Indication: DYSPEPSIA
     Dosage: AS NEEDED
  12. TENORMIN [Concomitant]
     Dosage: 25 MG, 1X/DAY
     Route: 048
  13. DECADRON [Concomitant]
     Dosage: 2 MG, 2 TABS TID FOR 3 DAYS
  14. DECADRON [Concomitant]
     Dosage: 2 MG, 1 TAB BID FOR 3 DAYS
  15. DECADRON [Concomitant]
     Dosage: 1 DF, 2X/DAY FOR 3 DAYS
  16. DECADRON [Concomitant]
     Dosage: 1 DF, 1X/DAY FOR 3 DAYS
  17. VICODIN [Concomitant]
     Indication: PAIN
     Dosage: 5 (HYDROCODONE)-500 (ACETAMINOPHEN) MG TAKE 1 TABLET EVERY 6 (SIX) HOURS AS NEEDED
     Route: 048
  18. GLUCOPHAGE [Concomitant]
     Dosage: 1000 MG, 2X/DAY
     Route: 048
  19. PROCARDIA XL [Concomitant]
     Dosage: 30 MG, 1X/DAY
     Route: 048
  20. COMPAZINE [Concomitant]
     Dosage: 10 MG, TAKE 1 TABLET EVERY 6 (SLX) HOURS AS NEEDED
     Route: 048
  21. ULTRAM [Concomitant]
     Indication: PAIN
     Dosage: 50 MG,TAKE 1 TABLET EVERY 6 (SIX) HOURS AS NEEDED
     Route: 048
  22. DIABETA [Concomitant]
     Dosage: TAKE 2.5 MG BY MOUTH DAILY
     Route: 048
  23. DIABETA [Concomitant]
     Dosage: 2.5 MG, 2 TABS DAILY
     Route: 048
     Dates: start: 20131109
  24. ALPRAZOLAM [Concomitant]
     Dosage: UNK
  25. ATENOLOL [Concomitant]
     Dosage: UNK

REACTIONS (28)
  - Death [Fatal]
  - Confusional state [Recovering/Resolving]
  - Agitation [Recovering/Resolving]
  - Hallucination [Recovered/Resolved]
  - Paraesthesia [Unknown]
  - Decreased appetite [Recovering/Resolving]
  - Hallucination, visual [Unknown]
  - Hallucination, auditory [Unknown]
  - Dehydration [Unknown]
  - Diarrhoea [Unknown]
  - Fluid intake reduced [Unknown]
  - Delirium [Unknown]
  - Encephalopathy [Recovered/Resolved]
  - Fatigue [Not Recovered/Not Resolved]
  - Mental status changes [Unknown]
  - Oral pain [Unknown]
  - Eye disorder [Recovering/Resolving]
  - Blood glucose decreased [Unknown]
  - Thrombocytopenia [Recovering/Resolving]
  - Hypomagnesaemia [Unknown]
  - Candida infection [Unknown]
  - Chest pain [Unknown]
  - Paranoia [Unknown]
  - Aggression [Unknown]
  - Post-traumatic amnestic disorder [Not Recovered/Not Resolved]
  - Throat lesion [Unknown]
  - Pain in extremity [Unknown]
  - Dyspnoea [Unknown]
